FAERS Safety Report 17112775 (Version 1)
Quarter: 2019Q4

REPORT INFORMATION
  Report Type: Spontaneous
  Country: BR (occurrence: BR)
  Receive Date: 20191204
  Receipt Date: 20191204
  Transmission Date: 20200122
  Serious: Yes (Other)
  Sender: FDA-Public Use
  Company Number: NVSC2019BR057904

PATIENT
  Sex: Female

DRUGS (3)
  1. TIMOLOL MALEATE. [Suspect]
     Active Substance: TIMOLOL MALEATE
     Indication: GLAUCOMA
     Route: 065
  2. TRAVATAN [Suspect]
     Active Substance: TRAVOPROST
     Indication: GLAUCOMA
     Route: 065
  3. DUOTRAV BAK FREE [Suspect]
     Active Substance: TIMOLOL\TRAVOPROST
     Indication: GLAUCOMA
     Dosage: UNK
     Route: 065

REACTIONS (1)
  - Cataract [Unknown]
